FAERS Safety Report 9240230 (Version 1)
Quarter: 2013Q2

REPORT INFORMATION
  Report Type: Spontaneous
  Country: US (occurrence: None)
  Receive Date: 20130417
  Receipt Date: 20130417
  Transmission Date: 20140414
  Serious: Yes (Other)
  Sender: FDA-Public Use
  Company Number: AUR-APL-2013-03127

PATIENT
  Age: 60 Year
  Sex: Female

DRUGS (3)
  1. PIPERACILLIN+TAZOBACTAM [Suspect]
     Indication: UROSEPSIS
  2. CIPROFLOXACIN (CIPROFLOXACIN) [Suspect]
     Indication: UROSEPSIS
  3. MEROPENEM (MEROPENEM) [Suspect]
     Indication: UROSEPSIS

REACTIONS (11)
  - Influenza like illness [None]
  - Nausea [None]
  - Malaise [None]
  - Chills [None]
  - Pollakiuria [None]
  - Oedema peripheral [None]
  - Anaphylactic reaction [None]
  - Wheezing [None]
  - Tachycardia [None]
  - Hypertension [None]
  - Escherichia infection [None]
